FAERS Safety Report 9643662 (Version 1)
Quarter: 2013Q4

REPORT INFORMATION
  Report Type: Spontaneous
  Country: FR (occurrence: None)
  Receive Date: 20131022
  Receipt Date: 20131022
  Transmission Date: 20140711
  Serious: Yes (Hospitalization)
  Sender: FDA-Public Use
  Company Number: 1916959

PATIENT
  Age: 81 Year
  Sex: Female

DRUGS (4)
  1. CARBOPLATIN [Suspect]
     Indication: OVARIAN EPITHELIAL CANCER
     Route: 041
     Dates: start: 20100304, end: 20100304
  2. POLARMINE [Concomitant]
  3. METHYLPREDNISOLONE MERCK [Concomitant]
  4. ZOPHREN [Concomitant]

REACTIONS (6)
  - Burning sensation [None]
  - Abdominal pain upper [None]
  - Erythema [None]
  - Blood pressure increased [None]
  - Heart rate increased [None]
  - Hypersensitivity [None]
